FAERS Safety Report 6749317-6 (Version None)
Quarter: 2010Q2

REPORT INFORMATION
  Report Type: 
  Country: None (occurrence: None)
  Receive Date: 20100601
  Receipt Date: 20100520
  Transmission Date: 20101027
  Serious: Yes (Death, Life-Threatening, Hospitalization)
  Sender: FDA-Public Use
  Company Number: US-ROCHE-612670

PATIENT
  Sex: Female
  Weight: 73.6 kg

DRUGS (5)
  1. BEVACIZUMAB [Suspect]
     Route: 065
  2. GDC-0449 [Suspect]
     Dosage: 150 UNK, QD
     Route: 048
     Dates: start: 20081003
  3. FLUOROURACIL [Suspect]
     Route: 065
  4. OXALIPLATIN [Suspect]
     Route: 065
  5. LEUCOVORIN CALCIUM [Concomitant]

REACTIONS (1)
  - REVERSIBLE POSTERIOR LEUKOENCEPHALOPATHY SYNDROME [None]
